FAERS Safety Report 15347306 (Version 1)
Quarter: 2018Q3

REPORT INFORMATION
  Report Type: Spontaneous
  Country: US (occurrence: US)
  Receive Date: 20180904
  Receipt Date: 20180904
  Transmission Date: 20181010
  Serious: No
  Sender: FDA-Public Use
  Company Number: US-SA-2018SA060985

PATIENT
  Age: 12 Year
  Sex: Female
  Weight: 31.29 kg

DRUGS (30)
  1. FABRAZYME [Suspect]
     Active Substance: AGALSIDASE BETA
     Indication: FABRY^S DISEASE
     Dosage: 0.95 MG/KG,QOW
     Route: 041
  2. MOMETASONE FUROATE. [Concomitant]
     Active Substance: MOMETASONE FUROATE
     Dosage: UNK UNK,BID
     Route: 045
     Dates: start: 20170621
  3. ZINC OXIDE. [Concomitant]
     Active Substance: ZINC OXIDE
     Dosage: 1 DF,PRN
     Route: 061
     Dates: start: 20170621
  4. NORMAL SALINE [Concomitant]
     Active Substance: SODIUM CHLORIDE
     Indication: MEDICATION DILUTION
     Dosage: 0.9 %,PRN
     Route: 042
     Dates: start: 20171012
  5. NORMAL SALINE [Concomitant]
     Active Substance: SODIUM CHLORIDE
     Dosage: 0.9 MG
     Route: 042
     Dates: start: 20180515
  6. EPINEPHRINE. [Concomitant]
     Active Substance: EPINEPHRINE
     Indication: ANAPHYLACTIC REACTION
     Dosage: .3 MG,PRN
     Route: 030
     Dates: start: 20171012
  7. HYDROXYZINE [Concomitant]
     Active Substance: HYDROXYZINE HYDROCHLORIDE
     Dosage: 1 DF,PRN
     Route: 048
     Dates: start: 20170621
  8. SALBUTAMOL [Concomitant]
     Active Substance: ALBUTEROL
     Dosage: 1 DF,PRN
     Route: 065
     Dates: start: 20170621
  9. HEPARIN [Concomitant]
     Active Substance: HEPARIN SODIUM
     Indication: FLUSHING
     Dosage: UNK UNK,PRN
     Route: 042
     Dates: start: 20171012
  10. HEPARIN [Concomitant]
     Active Substance: HEPARIN SODIUM
     Dosage: 100 UN/ML
     Route: 042
     Dates: start: 20180515
  11. ZYRTEC [Concomitant]
     Active Substance: CETIRIZINE HYDROCHLORIDE
     Dosage: 1 DF,QD
     Route: 048
     Dates: start: 20170621
  12. SODIUM CHLORIDE. [Concomitant]
     Active Substance: SODIUM CHLORIDE
     Indication: FLUSHING
     Dosage: 0.9 %,PRN
     Route: 042
     Dates: start: 20171012
  13. VITAMIN B COMPLEX [Concomitant]
     Active Substance: CYANOCOBALAMIN\DEXPANTHENOL\NIACINAMIDE\PYRIDOXINE HYDROCHLORIDE\RIBOFLAVIN 5^-PHOSPHATE SODIUM\THIAMINE HYDROCHLORIDE\VITAMIN B COMPLEX
     Dosage: 1 DF,QID
     Route: 048
     Dates: start: 20170621
  14. ATROVENT [Concomitant]
     Active Substance: IPRATROPIUM BROMIDE
     Dosage: 1 DF,PRN
     Route: 055
     Dates: start: 20170621
  15. DIPHENHYDRAMINE. [Concomitant]
     Active Substance: DIPHENHYDRAMINE
     Indication: ANAPHYLACTIC REACTION
     Dosage: 25 MG,PRN
     Route: 048
     Dates: start: 20171012
  16. SODIUM CHLORIDE. [Concomitant]
     Active Substance: SODIUM CHLORIDE
     Dosage: 0.9 UNK
     Route: 042
     Dates: start: 20180515
  17. EPINEPHRINE. [Concomitant]
     Active Substance: EPINEPHRINE
     Dosage: 0.3 UNK
     Route: 030
     Dates: start: 20180515
  18. KLONOPIN [Concomitant]
     Active Substance: CLONAZEPAM
     Dosage: 1 DF,PRN
     Route: 048
     Dates: start: 20170621
  19. ZOLOFT [Concomitant]
     Active Substance: SERTRALINE HYDROCHLORIDE
     Dosage: 2 DF,QD
     Route: 048
     Dates: start: 20170621
  20. NEURONTIN [Concomitant]
     Active Substance: GABAPENTIN
     Dosage: 2 DF,UNK
     Route: 048
     Dates: start: 20170621
  21. HYDROCORTISONE. [Concomitant]
     Active Substance: HYDROCORTISONE
     Dosage: 1 DF,PRN
     Route: 061
     Dates: start: 20170621
  22. PAMELOR [Concomitant]
     Active Substance: NORTRIPTYLINE HYDROCHLORIDE
     Dosage: 30 MG,QD
     Route: 048
     Dates: start: 20170621
  23. KLONOPIN [Concomitant]
     Active Substance: CLONAZEPAM
     Dosage: UNK
  24. SUMATRIPTAN. [Concomitant]
     Active Substance: SUMATRIPTAN
     Dosage: 1 DF,PRN
     Route: 048
     Dates: start: 20170621
  25. NYSTATIN. [Concomitant]
     Active Substance: NYSTATIN
     Dosage: 1 DF,PRN
     Route: 061
     Dates: start: 20170621
  26. ZOFRAN [ONDANSETRON] [Concomitant]
     Dosage: 1 DF,PRN
     Route: 048
     Dates: start: 20170621
  27. GUANFACINE. [Concomitant]
     Active Substance: GUANFACINE
     Dosage: 1 DF,PRN
     Route: 048
     Dates: start: 20170621
  28. DIPHENHYDRAMINE. [Concomitant]
     Active Substance: DIPHENHYDRAMINE
     Dosage: 25 UNK
     Dates: start: 20180515
  29. IBUPROFEN. [Concomitant]
     Active Substance: IBUPROFEN
     Dosage: 1 DF,PRN
     Route: 048
     Dates: start: 20170621
  30. SENNA [SENNA SPP.] [Concomitant]
     Dosage: 1 DF,TID
     Route: 048
     Dates: start: 20170621

REACTIONS (3)
  - Bacterial infection [Unknown]
  - Fungal infection [Unknown]
  - Ear infection [Unknown]

NARRATIVE: CASE EVENT DATE: 20180814
